FAERS Safety Report 5761560-1 (Version None)
Quarter: 2008Q2

REPORT INFORMATION
  Report Type: 
  Country: None (occurrence: None)
  Receive Date: 20080606
  Receipt Date: 20080528
  Transmission Date: 20081010
  Serious: Yes (Other)
  Sender: FDA-Public Use
  Company Number: JP-PFIZER INC-2008042911

PATIENT
  Sex: Female

DRUGS (4)
  1. LIPITOR [Suspect]
     Route: 048
  2. CINALONG [Concomitant]
  3. TERNELIN [Concomitant]
  4. KERLONG [Concomitant]

REACTIONS (2)
  - GENERALISED ERYTHEMA [None]
  - PURPURA [None]
